FAERS Safety Report 7060938-6 (Version None)
Quarter: 2010Q4

REPORT INFORMATION
  Report Type: 
  Country: None (occurrence: None)
  Receive Date: 20101026
  Receipt Date: 20101014
  Transmission Date: 20110411
  Serious: Yes (Other)
  Sender: FDA-Public Use
  Company Number: US-AMGEN-QUU440937

PATIENT

DRUGS (6)
  1. EPOGEN [Suspect]
     Indication: DIALYSIS
     Dosage: 10000 IU, QWK
     Route: 042
     Dates: start: 20100623
  2. SENSIPAR [Concomitant]
     Dosage: 30 MG, QHS
     Route: 048
     Dates: start: 20100623
  3. RENAGEL                            /01459901/ [Concomitant]
     Dosage: UNK UNK, TID
     Dates: start: 20100623
  4. XANAX [Concomitant]
     Dosage: 1 MG, TID
     Route: 048
     Dates: start: 20100623
  5. HEPARIN [Suspect]
     Dosage: UNK
     Dates: start: 20100623
  6. ZEMPLAR [Concomitant]
     Dosage: 2 A?G, QOD
     Route: 048
     Dates: start: 20100623

REACTIONS (3)
  - FATIGUE [None]
  - HAEMATURIA [None]
  - URINARY TRACT INFECTION ENTEROCOCCAL [None]
